FAERS Safety Report 8874033 (Version 2)
Quarter: 2012Q4

REPORT INFORMATION
  Report Type: 
  Country: IT (occurrence: IT)
  Receive Date: 20121023
  Receipt Date: 20121126
  Transmission Date: 20130627
  Serious: Yes (Death)
  Sender: FDA-Public Use
  Company Number: IT-JNJFOC-20121010923

PATIENT
  Age: 22 Year
  Sex: Male

DRUGS (5)
  1. DOXORUBICIN [Suspect]
     Indication: BONE SARCOMA
     Dosage: 300-360 mg/m2 infusion over 8 hours
     Route: 042
  2. DOXORUBICIN HYDROCHLORIDE [Suspect]
     Indication: BONE SARCOMA
     Dosage: 300-360 mg/m2 infusion over 8 hours
     Route: 042
  3. CISPLATIN [Suspect]
     Indication: BONE SARCOMA
     Route: 065
  4. METHOTREXATE [Suspect]
     Indication: BONE SARCOMA
     Route: 065
  5. IFOSFAMIDE [Suspect]
     Indication: BONE SARCOMA
     Route: 065

REACTIONS (2)
  - Non-Hodgkin^s lymphoma [Fatal]
  - Off label use [Unknown]
